FAERS Safety Report 26147144 (Version 1)
Quarter: 2025Q4

REPORT INFORMATION
  Report Type: Spontaneous
  Country: EU (occurrence: EU)
  Receive Date: 20251211
  Receipt Date: 20251211
  Transmission Date: 20260118
  Serious: Yes (Other)
  Sender: NOVARTIS
  Company Number: None

PATIENT
  Age: 47 Year
  Sex: Male

DRUGS (2)
  1. MEKINIST [Suspect]
     Active Substance: TRAMETINIB DIMETHYL SULFOXIDE
     Indication: Malignant melanoma stage III
     Dosage: 2 MG, Q24H, (2 MG/DIE, RIDOTTO A 1.5 MG/DIE DAL 30/08/2025)
     Route: 048
     Dates: start: 20240802, end: 20250218
  2. TAFINLAR [Suspect]
     Active Substance: DABRAFENIB MESYLATE
     Indication: Malignant melanoma stage III
     Dosage: 150 MG, Q12H, (300 MG/DIE, RIDUZIONE A 200 MG/DIE DAL 30/08/2024)
     Route: 048
     Dates: start: 20240802, end: 20250218

REACTIONS (2)
  - Hyperpyrexia [Recovered/Resolved]
  - Organising pneumonia [Recovered/Resolved]

NARRATIVE: CASE EVENT DATE: 20240803
